FAERS Safety Report 11702898 (Version 1)
Quarter: 2015Q4

REPORT INFORMATION
  Report Type: Spontaneous
  Country: DE (occurrence: DE)
  Receive Date: 20151105
  Receipt Date: 20151105
  Transmission Date: 20160304
  Serious: Yes (Other)
  Sender: FDA-Public Use
  Company Number: DE-ELI_LILLY_AND_COMPANY-DE201510008569

PATIENT
  Age: 54 Year
  Sex: Male
  Weight: 106 kg

DRUGS (2)
  1. METHADONE [Concomitant]
     Active Substance: METHADONE HYDROCHLORIDE
     Indication: PRODUCT USED FOR UNKNOWN INDICATION
     Dosage: UNK, UNKNOWN
     Route: 065
  2. ZYPADHERA [Suspect]
     Active Substance: OLANZAPINE PAMOATE
     Indication: SCHIZOPHRENIA, PARANOID TYPE
     Dosage: 300 MG, MONTHLY (1/M)
     Route: 030
     Dates: start: 20140427

REACTIONS (6)
  - Insomnia [Unknown]
  - Disorientation [Unknown]
  - Visual impairment [Unknown]
  - Dizziness [Unknown]
  - Dysarthria [Unknown]
  - Akathisia [Unknown]

NARRATIVE: CASE EVENT DATE: 20150925
